FAERS Safety Report 5819936-X (Version None)
Quarter: 2008Q3

REPORT INFORMATION
  Report Type: 
  Country: None (occurrence: None)
  Receive Date: 20080717
  Receipt Date: 20080707
  Transmission Date: 20090109
  Serious: Yes (Hospitalization)
  Sender: FDA-Public Use
  Company Number: 2008AL003871

PATIENT
  Age: 92 Year
  Sex: Female
  Weight: 142 kg

DRUGS (1)
  1. DIGOXIN [Suspect]
     Dosage: DAILY PO;  SEVERAL YEARS
     Route: 048

REACTIONS (2)
  - MALAISE [None]
  - PALPITATIONS [None]
